FAERS Safety Report 5017641-3 (Version None)
Quarter: 2006Q2

REPORT INFORMATION
  Report Type: 
  Country: None (occurrence: None)
  Receive Date: 20060605
  Receipt Date: 20051102
  Transmission Date: 20061013
  Serious: Yes (Other)
  Sender: FDA-Public Use
  Company Number: DE-ROCHE-423344

PATIENT

DRUGS (3)
  1. PEGASYS [Suspect]
     Dates: start: 20050623
  2. COPEGUS [Suspect]
     Dates: start: 20050623
  3. AMANTADINE HCL [Concomitant]
     Dates: start: 20050623

REACTIONS (2)
  - NORMAL NEWBORN [None]
  - TRANSMISSION OF DRUG VIA SEMEN [None]
